FAERS Safety Report 6294966-5 (Version None)
Quarter: 2009Q3

REPORT INFORMATION
  Report Type: 
  Country: None (occurrence: None)
  Receive Date: 20090803
  Receipt Date: 20090727
  Transmission Date: 20100115
  Serious: Yes (Hospitalization)
  Sender: FDA-Public Use
  Company Number: KR-BRISTOL-MYERS SQUIBB COMPANY-14507891

PATIENT
  Age: 64 Year
  Sex: Female
  Weight: 60 kg

DRUGS (3)
  1. CETUXIMAB [Suspect]
     Indication: GASTROOESOPHAGEAL CANCER
     Dosage: RECENT INFUSION: 06FEB09;5MG/ML
     Route: 042
     Dates: start: 20081121
  2. CISPLATIN [Suspect]
     Indication: GASTROOESOPHAGEAL CANCER
     Dosage: RECENT INFUSION:23JAN09. 21NOV08:80MG/M2,TAKEN ON DAY 1 OF CYCLE
     Route: 042
     Dates: start: 20081121
  3. XELODA [Suspect]
     Indication: GASTROOESOPHAGEAL CANCER
     Dosage: RECENT DOSE:28JAN09. ON 21NOV08, 1600MG/M2,TAKEN ON DAY 1-15;FORM:TABS
     Route: 048
     Dates: start: 20081121

REACTIONS (2)
  - DYSPNOEA [None]
  - PULMONARY EMBOLISM [None]
